FAERS Safety Report 19706735 (Version 1)
Quarter: 2021Q3

REPORT INFORMATION
  Report Type: Spontaneous
  Country: US (occurrence: US)
  Receive Date: 20210816
  Receipt Date: 20210816
  Transmission Date: 20211014
  Serious: No
  Sender: FDA-Public Use
  Company Number: None

PATIENT
  Age: 85 Year
  Sex: Male

DRUGS (1)
  1. ADALAT CC [Suspect]
     Active Substance: NIFEDIPINE
     Route: 048
     Dates: start: 20190823, end: 20210525

REACTIONS (2)
  - Hot flush [None]
  - Flushing [None]

NARRATIVE: CASE EVENT DATE: 20210501
